FAERS Safety Report 24265110 (Version 1)
Quarter: 2024Q3

REPORT INFORMATION
  Report Type: Spontaneous
  Country: US (occurrence: US)
  Receive Date: 20240829
  Receipt Date: 20240829
  Transmission Date: 20241017
  Serious: No
  Sender: AKCEA THERAPEUTICS
  Company Number: US-AKCEA THERAPEUTICS, INC.-2024IS005228

PATIENT

DRUGS (1)
  1. TEGSEDI [Suspect]
     Active Substance: INOTERSEN SODIUM
     Indication: Hereditary neuropathic amyloidosis
     Dosage: 284 MILLIGRAM, QW (WEEKLY)
     Route: 058
     Dates: start: 201604

REACTIONS (6)
  - Dizziness postural [Unknown]
  - Fear of falling [Unknown]
  - Change of bowel habit [Unknown]
  - Presyncope [Unknown]
  - Chills [Unknown]
  - Orthostatic hypotension [Not Recovered/Not Resolved]
